FAERS Safety Report 8184080-6 (Version None)
Quarter: 2012Q1

REPORT INFORMATION
  Report Type: 
  Country: None (occurrence: None)
  Receive Date: 20120305
  Receipt Date: 20120227
  Transmission Date: 20120608
  Serious: Yes (Death, Hospitalization)
  Sender: FDA-Public Use
  Company Number: CHPA2012US003904

PATIENT
  Age: 27 Year
  Sex: Female

DRUGS (2)
  1. ACETAMINOPHEN [Suspect]
     Dosage: UNK, UNK
  2. CARISOPRODOL [Suspect]
     Dosage: UNK, UNK

REACTIONS (28)
  - PULMONARY CONGESTION [None]
  - PULMONARY OEDEMA [None]
  - BLOOD PRESSURE DECREASED [None]
  - URINE OUTPUT DECREASED [None]
  - ACTIVATED PARTIAL THROMBOPLASTIN TIME PROLONGED [None]
  - HEART RATE INCREASED [None]
  - PH BODY FLUID DECREASED [None]
  - TOXICITY TO VARIOUS AGENTS [None]
  - HAEMOGLOBIN DECREASED [None]
  - PCO2 DECREASED [None]
  - BLOOD GLUCOSE DECREASED [None]
  - ALANINE AMINOTRANSFERASE INCREASED [None]
  - WHITE BLOOD CELL COUNT INCREASED [None]
  - BRAIN HERNIATION [None]
  - BLOOD BILIRUBIN INCREASED [None]
  - PLATELET COUNT DECREASED [None]
  - PO2 INCREASED [None]
  - UNRESPONSIVE TO STIMULI [None]
  - PROTHROMBIN TIME PROLONGED [None]
  - BILIRUBIN CONJUGATED INCREASED [None]
  - HAEMATOCRIT DECREASED [None]
  - DRUG SCREEN POSITIVE [None]
  - COMPLETED SUICIDE [None]
  - BRAIN OEDEMA [None]
  - INTERNATIONAL NORMALISED RATIO INCREASED [None]
  - ASPARTATE AMINOTRANSFERASE INCREASED [None]
  - LETHARGY [None]
  - RESPIRATORY RATE INCREASED [None]
